FAERS Safety Report 11535706 (Version 1)
Quarter: 2015Q3

REPORT INFORMATION
  Report Type: Spontaneous
  Country: US (occurrence: None)
  Receive Date: 20150921
  Receipt Date: 20150921
  Transmission Date: 20151125
  Serious: Yes (Other)
  Sender: FDA-Public Use
  Company Number: None

PATIENT
  Age: 28 Year
  Sex: Female
  Weight: 64.86 kg

DRUGS (3)
  1. ALPROLAZAM TARTRATE [Concomitant]
  2. ZOLPIDEM [Concomitant]
     Active Substance: ZOLPIDEM\ZOLPIDEM TARTRATE
  3. ALPRAZOLAM. [Suspect]
     Active Substance: ALPRAZOLAM
     Indication: ANXIETY
     Dosage: THREE TIMES DAILY TAKEN BY MOUTH
     Route: 048
     Dates: start: 20150904, end: 20150920

REACTIONS (9)
  - Tachyphrenia [None]
  - Hyperventilation [None]
  - Fatigue [None]
  - Dyspnoea [None]
  - Drug effect decreased [None]
  - Product substitution issue [None]
  - Product quality issue [None]
  - Aggression [None]
  - Panic reaction [None]

NARRATIVE: CASE EVENT DATE: 20150909
